FAERS Safety Report 10153095 (Version 1)
Quarter: 2014Q2

REPORT INFORMATION
  Report Type: Spontaneous
  Country: GB (occurrence: GB)
  Receive Date: 20140505
  Receipt Date: 20140505
  Transmission Date: 20141212
  Serious: Yes (Hospitalization, Disabling)
  Sender: FDA-Public Use
  Company Number: GB-BRISTOL-MYERS SQUIBB COMPANY-20672960

PATIENT
  Age: 83 Year
  Sex: Female

DRUGS (1)
  1. HYDROXYCARBAMIDE [Suspect]
     Indication: LEUKAEMIA
     Dosage: DOSAGE:500MG DAILY MONDAY TO SATURDAY AND 1G ON SUNDAY
     Route: 048

REACTIONS (2)
  - Hydronephrosis [Not Recovered/Not Resolved]
  - Nephrolithiasis [Not Recovered/Not Resolved]
